FAERS Safety Report 14667598 (Version 1)
Quarter: 2018Q1

REPORT INFORMATION
  Report Type: Spontaneous
  Country: US (occurrence: US)
  Receive Date: 20180320
  Receipt Date: 20180320
  Transmission Date: 20180509
  Serious: No
  Sender: FDA-Public Use
  Company Number: None

PATIENT
  Age: 82 Year
  Sex: Female

DRUGS (1)
  1. IBRANCE [Suspect]
     Active Substance: PALBOCICLIB

REACTIONS (4)
  - Dysphagia [None]
  - Sinusitis [None]
  - Small intestine carcinoma metastatic [None]
  - Drug ineffective [None]

NARRATIVE: CASE EVENT DATE: 20180320
